FAERS Safety Report 12763987 (Version 1)
Quarter: 2016Q3

REPORT INFORMATION
  Report Type: Spontaneous
  Country: US (occurrence: US)
  Receive Date: 20160920
  Receipt Date: 20160920
  Transmission Date: 20161109
  Serious: No
  Sender: FDA-Public Use
  Company Number: US-LPDUSPRD-20160403

PATIENT
  Sex: Female

DRUGS (1)
  1. ACETYLCYSTEINE SOLUTION, USP (7630-03) [Suspect]
     Active Substance: ACETYLCYSTEINE
     Dosage: DOSE UNKNOWN

REACTIONS (2)
  - Parosmia [None]
  - Nausea [Recovered/Resolved]
